FAERS Safety Report 5208770-X (Version None)
Quarter: 2007Q1

REPORT INFORMATION
  Report Type: 
  Country: None (occurrence: None)
  Receive Date: 20070111
  Receipt Date: 20070111
  Transmission Date: 20070707
  Serious: Yes (Hospitalization)
  Sender: FDA-Public Use
  Company Number: None

PATIENT
  Age: 54 Year
  Sex: Male
  Weight: 75.2971 kg

DRUGS (2)
  1. OXALIPLATIN [Suspect]
     Indication: PANCREATIC CARCINOMA
     Dates: start: 20061218, end: 20061227
  2. CAPECITABINE [Suspect]
     Dosage: 1150 MG BID DAY 1-38
     Dates: start: 20061219

REACTIONS (3)
  - CONSTIPATION [None]
  - DEHYDRATION [None]
  - MALNUTRITION [None]
